FAERS Safety Report 8936761 (Version 1)
Quarter: 2012Q4

REPORT INFORMATION
  Report Type: 
  Country: US (occurrence: US)
  Receive Date: 20121130
  Receipt Date: 20121130
  Transmission Date: 20130627
  Serious: Yes (Hospitalization)
  Sender: FDA-Public Use
  Company Number: US-BAYER-2012-125773

PATIENT
  Age: 76 Year
  Sex: Male

DRUGS (14)
  1. ACETYLSALICYLIC ACID({=100 MG) [Suspect]
     Dosage: Daily dose 81 mg
     Dates: end: 201106
  2. ACETYLSALICYLIC ACID({=100 MG) [Suspect]
     Dosage: UNK
     Dates: start: 201107
  3. CLOPIDOGREL [Suspect]
     Dosage: Daily dose 75 mg
     Dates: end: 201106
  4. CARVEDILOL [Concomitant]
     Dosage: 6.25 mg, BID
  5. BENAZEPRIL [Concomitant]
     Dosage: Daily dose 20 mg
  6. ROSUVASTATIN [Concomitant]
     Dosage: Daily dose 5 mg
  7. GLIPIZIDE [Concomitant]
     Dosage: Daily dose 5 mg
  8. ALLOPURINOL [Concomitant]
     Dosage: Daily dose 100 mg
  9. TAMSULOSIN [Concomitant]
     Dosage: Daily dose .4 mg
  10. OMEPRAZOLE [Concomitant]
     Dosage: Daily dose 20 mg
  11. PREDNISONE [Concomitant]
     Dosage: 10 mg, QOD
  12. FLUTICASONE W/SALMETEROL [Concomitant]
  13. ALBUTEROL W/IPRATROPIUM [Concomitant]
  14. TIOTROPIUM [Concomitant]

REACTIONS (2)
  - Hepatic haematoma [Recovered/Resolved]
  - Haemoglobin decreased [None]
